FAERS Safety Report 5093740-5 (Version None)
Quarter: 2006Q3

REPORT INFORMATION
  Report Type: 
  Country: None (occurrence: None)
  Receive Date: 20060728
  Receipt Date: 20060425
  Transmission Date: 20061208
  Serious: No
  Sender: FDA-Public Use
  Company Number: 252668

PATIENT
  Age: 55 Year
  Sex: Female
  Weight: 105.7 kg

DRUGS (8)
  1. LEVEMIR [Suspect]
     Indication: INSULIN-REQUIRING TYPE II DIABETES MELLITUS
     Dosage: 7 TO 10 IU, QD, SUBCUTANEOUS
     Route: 058
     Dates: start: 20060421
  2. METFORMIN HCL [Concomitant]
  3. NOVOFINE 30 (NEEDLE) [Concomitant]
  4. RANITIDIN (RANITIDINE HYDROCHLORIDE) [Concomitant]
  5. CADUET (ATORVASTATIN CALCIUM, AMLODIPINE BESILATE) [Concomitant]
  6. HYDROCHLOROTHIAZDE TAB [Concomitant]
  7. MVI (VITAMINS NOS) [Concomitant]
  8. TYLENOL WITH CODEINE (PARACETAMOL, CODEINE PHOSPHATE) [Concomitant]

REACTIONS (1)
  - PRURITUS [None]
